FAERS Safety Report 7442311-1 (Version None)
Quarter: 2011Q2

REPORT INFORMATION
  Report Type: 
  Country: None (occurrence: None)
  Receive Date: 20110425
  Receipt Date: 20110425
  Transmission Date: 20111010
  Serious: No
  Sender: FDA-Public Use
  Company Number: None

PATIENT
  Age: 86 Year
  Sex: Male
  Weight: 108.4097 kg

DRUGS (4)
  1. METOPROLOL SUCCINATE [Concomitant]
  2. PRADAXA [Suspect]
     Indication: ATRIAL FIBRILLATION
     Dosage: 150 MG TWICE DAILY PO
     Route: 048
     Dates: start: 20110404, end: 20110416
  3. FUROSEMIDE [Concomitant]
  4. LISINOPRIL [Concomitant]

REACTIONS (1)
  - HAEMATURIA [None]
